FAERS Safety Report 9758917 (Version 1)
Quarter: 2013Q4

REPORT INFORMATION
  Report Type: Spontaneous
  Country: US (occurrence: None)
  Receive Date: 20131216
  Receipt Date: 20131216
  Transmission Date: 20140711
  Serious: No
  Sender: FDA-Public Use
  Company Number: 163-POMAL-13040756(0)

PATIENT
  Age: 75 Year
  Sex: Female

DRUGS (1)
  1. POMALYST (POMALIDOMIDE) (4 MILLIGRAM, CAPSULES) [Suspect]
     Dosage: 4 MG, 28 IN 28 D, PO

REACTIONS (1)
  - Pruritus [None]
